FAERS Safety Report 23041329 (Version 1)
Quarter: 2023Q4

REPORT INFORMATION
  Report Type: Spontaneous
  Country: US (occurrence: US)
  Receive Date: 20231007
  Receipt Date: 20231007
  Transmission Date: 20240110
  Serious: Yes (Other)
  Sender: FDA-Public Use
  Company Number: US-AMGEN-USASP2023174065

PATIENT
  Sex: Female

DRUGS (2)
  1. XGEVA [Suspect]
     Active Substance: DENOSUMAB
     Indication: Product used for unknown indication
     Dosage: UNK
     Route: 065
  2. XELODA [Concomitant]
     Active Substance: CAPECITABINE
     Dosage: 1500 MILLIGRAM, BID, FOR 7 DAYS ON AND 7 DAYS OFF

REACTIONS (3)
  - Breast cancer metastatic [Unknown]
  - Intestinal obstruction [Unknown]
  - Osteonecrosis of jaw [Unknown]

NARRATIVE: CASE EVENT DATE: 20230101
